FAERS Safety Report 23053285 (Version 1)
Quarter: 2023Q4

REPORT INFORMATION
  Report Type: Spontaneous
  Country: US (occurrence: US)
  Receive Date: 20231011
  Receipt Date: 20231011
  Transmission Date: 20240110
  Serious: Yes (Other)
  Sender: FDA-Public Use
  Company Number: US-AVET LIFESCIENCES LTD-2023-AVET-000300

PATIENT
  Sex: Female

DRUGS (4)
  1. ZONISAMIDE [Suspect]
     Active Substance: ZONISAMIDE
     Indication: Partial seizures
     Dosage: 100 MILLIGRAM
     Route: 065
     Dates: start: 201201
  2. ZONISAMIDE [Suspect]
     Active Substance: ZONISAMIDE
     Dosage: INCREASED TO 400 MILLIGRAM OVER A ONE-YEAR PERIOD
     Route: 065
  3. LEVETIRACETAM [Concomitant]
     Active Substance: LEVETIRACETAM
     Indication: Partial seizures
     Dosage: UNKNOWN
  4. levetiracetam plus zonisimide [Concomitant]
     Indication: Partial seizures
     Dosage: UNKNOWN

REACTIONS (1)
  - Hereditary optic atrophy [Unknown]
